FAERS Safety Report 20212854 (Version 1)
Quarter: 2021Q4

REPORT INFORMATION
  Report Type: Spontaneous
  Country: JP (occurrence: JP)
  Receive Date: 20211221
  Receipt Date: 20211221
  Transmission Date: 20220303
  Serious: Yes (Death, Hospitalization, Other)
  Sender: FDA-Public Use
  Company Number: JP-CELGENE-JPN-20211205771

PATIENT
  Age: 8 Decade
  Sex: Male

DRUGS (2)
  1. ABRAXANE [Suspect]
     Active Substance: PACLITAXEL
     Indication: Pancreatic carcinoma
     Route: 041
  2. GEMCITABINE HYDROCHLORIDE [Concomitant]
     Active Substance: GEMCITABINE HYDROCHLORIDE
     Indication: Pancreatic carcinoma
     Route: 041

REACTIONS (7)
  - Pneumonia [Fatal]
  - Gastric ulcer haemorrhage [Unknown]
  - Small intestinal haemorrhage [Unknown]
  - Haemophagocytic lymphohistiocytosis [Unknown]
  - Pneumomediastinum [Recovering/Resolving]
  - Full blood count decreased [Unknown]
  - Mouth haemorrhage [Unknown]
